FAERS Safety Report 7484691-7 (Version None)
Quarter: 2011Q2

REPORT INFORMATION
  Report Type: 
  Country: None (occurrence: None)
  Receive Date: 20110517
  Receipt Date: 20101209
  Transmission Date: 20111010
  Serious: Yes (Life-Threatening, Hospitalization)
  Sender: FDA-Public Use
  Company Number: DE-BAYER-2010-000133

PATIENT
  Age: 36 Year
  Sex: Female
  Weight: 84 kg

DRUGS (1)
  1. AVELOX [Suspect]
     Indication: SINOBRONCHITIS
     Dosage: 400 MG, ONCE
     Dates: start: 20101126

REACTIONS (6)
  - DYSPNOEA [None]
  - URTICARIA [None]
  - THROAT TIGHTNESS [None]
  - NAUSEA [None]
  - HYPOTENSION [None]
  - ANAPHYLACTIC REACTION [None]
